FAERS Safety Report 22520577 (Version 1)
Quarter: 2023Q2

REPORT INFORMATION
  Report Type: Spontaneous
  Country: US (occurrence: US)
  Receive Date: 20230605
  Receipt Date: 20230605
  Transmission Date: 20230722
  Serious: Yes (Other)
  Sender: FDA-Public Use
  Company Number: US-BRISTOL-MYERS SQUIBB COMPANY-2023-078284

PATIENT
  Sex: Male

DRUGS (2)
  1. ELIQUIS [Suspect]
     Active Substance: APIXABAN
     Indication: Deep vein thrombosis
     Dosage: DOSE : 5MG;     FREQ : TWICE DAILY IN THE MORNING AND AFTERNOON
  2. ELIQUIS [Suspect]
     Active Substance: APIXABAN
     Indication: Pulmonary embolism

REACTIONS (1)
  - Haemorrhage [Unknown]
